FAERS Safety Report 7146511-X (Version None)
Quarter: 2010Q4

REPORT INFORMATION
  Report Type: 
  Country: None (occurrence: None)
  Receive Date: 20101208
  Receipt Date: 20101126
  Transmission Date: 20110411
  Serious: Yes (Other)
  Sender: FDA-Public Use
  Company Number: BR-PFIZER INC-2010159041

PATIENT
  Age: 69 Year
  Sex: Female
  Weight: 52 kg

DRUGS (5)
  1. MINIDIAB [Suspect]
     Indication: BLOOD GLUCOSE INCREASED
     Dosage: 1/2 TABLET OF 5MG
     Route: 048
     Dates: start: 20080101
  2. ALPRAZOLAM [Concomitant]
     Indication: DEPRESSION
     Dosage: UNK
  3. ALPRAZOLAM [Concomitant]
     Indication: ANXIETY
  4. RIVOTRIL [Concomitant]
     Indication: DEPRESSION
     Dosage: UNK
  5. RIVOTRIL [Concomitant]
     Indication: ANXIETY

REACTIONS (4)
  - BLOOD GLUCOSE INCREASED [None]
  - DIZZINESS [None]
  - TREMOR [None]
  - WEIGHT DECREASED [None]
